FAERS Safety Report 9103942 (Version 3)
Quarter: 2013Q3

REPORT INFORMATION
  Report Type: Spontaneous
  Country: US (occurrence: US)
  Receive Date: 20130219
  Receipt Date: 20130918
  Transmission Date: 20140515
  Serious: No
  Sender: FDA-Public Use
  Company Number: US-PFIZER INC-2013060217

PATIENT
  Age: 69 Year
  Sex: Female

DRUGS (15)
  1. CELEBREX [Suspect]
     Indication: PAIN
     Dosage: 200 MG, 2X/DAY
  2. CELEBREX [Suspect]
     Dosage: UNK, 4X/DAY
  3. EFFEXOR [Suspect]
     Indication: PAIN
     Dosage: 150 MG, 2X/DAY
  4. EFFEXOR [Suspect]
     Dosage: UNK, 4X/DAY
  5. EFFEXOR XR [Suspect]
     Indication: PAIN
     Dosage: 150 MG, 2X/DAY
  6. EFFEXOR XR [Suspect]
     Dosage: UNK, 4X/DAY
  7. GABAPENTIN [Suspect]
     Indication: PAIN
     Dosage: 600 MG, 4X/DAY
  8. GABAPENTIN [Suspect]
     Dosage: UNK, 4X/DAY
  9. LORAZEPAM [Suspect]
     Indication: PAIN
     Dosage: UNK, 4X/DAY
  10. NORVASC [Suspect]
     Indication: PAIN
     Dosage: 5 MG, 1X/DAY (ONCE A HS /ONCE AT NIGHT )
  11. NORVASC [Suspect]
     Dosage: UNK, 4X/DAY
  12. PREMPRO [Suspect]
     Indication: PAIN
     Dosage: 0.3-1.5 MG ONCE DAILY
  13. PREMPRO [Suspect]
     Dosage: UNK, 4X/DAY
  14. DIOVAN [Suspect]
     Indication: PAIN
     Dosage: UNK
  15. DIOVAN [Suspect]
     Dosage: UNK, 4X/DAY

REACTIONS (2)
  - Intentional drug misuse [Unknown]
  - Drug ineffective [Unknown]
